FAERS Safety Report 6371644-5 (Version None)
Quarter: 2009Q3

REPORT INFORMATION
  Report Type: 
  Country: None (occurrence: None)
  Receive Date: 20090923
  Receipt Date: 20080731
  Transmission Date: 20100115
  Serious: Yes (Other)
  Sender: FDA-Public Use
  Company Number: US-ASTRAZENECA-2008UW06480

PATIENT
  Age: 47 Year
  Sex: Male

DRUGS (4)
  1. SEROQUEL [Suspect]
     Dosage: 50MG
     Route: 048
  2. TRILIFON [Concomitant]
  3. LAMICTAL [Concomitant]
     Dosage: 50MG/D
  4. CLOZARIL [Concomitant]

REACTIONS (2)
  - ELECTROCARDIOGRAM QT PROLONGED [None]
  - OPISTHOTONUS [None]
